FAERS Safety Report 16798426 (Version 1)
Quarter: 2019Q3

REPORT INFORMATION
  Report Type: Spontaneous
  Country: US (occurrence: US)
  Receive Date: 20190722
  Receipt Date: 20190722
  Transmission Date: 20191005
  Serious: Yes (Hospitalization)
  Sender: FDA-Public Use
  Company Number: None

PATIENT
  Age: 9 Month
  Sex: Male

DRUGS (2)
  1. RISPERIDONE. [Suspect]
     Active Substance: RISPERIDONE
     Route: 048
  2. ONDANSETRON [Suspect]
     Active Substance: ONDANSETRON
     Route: 048

REACTIONS (7)
  - Tachycardia [None]
  - Seizure [None]
  - Product packaging confusion [None]
  - Product dispensing error [None]
  - Wrong product administered [None]
  - Mental status changes [None]
  - Electrocardiogram QT prolonged [None]
